FAERS Safety Report 7196201-2 (Version None)
Quarter: 2010Q4

REPORT INFORMATION
  Report Type: 
  Country: None (occurrence: None)
  Receive Date: 20101223
  Receipt Date: 20101019
  Transmission Date: 20110411
  Serious: No
  Sender: FDA-Public Use
  Company Number: US-AMGEN-USASP2010001609

PATIENT

DRUGS (6)
  1. ENBREL [Suspect]
     Indication: PRODUCT USED FOR UNKNOWN INDICATION
     Dosage: 50 MG, QWK
     Route: 058
  2. NEURONTIN [Concomitant]
     Dosage: 600 MG, UNK
     Route: 048
  3. SYNTHROID [Concomitant]
     Dosage: 125 UNK, UNK
     Route: 048
  4. TRAMADOL HCL [Concomitant]
     Dosage: 50 MG, UNK
     Route: 048
  5. IBUPROFEN [Concomitant]
     Dosage: 200 MG, UNK
     Route: 048
  6. PRILOSEC [Concomitant]
     Dosage: 20 MG, UNK
     Route: 048

REACTIONS (3)
  - ABDOMINAL PAIN [None]
  - INJECTION SITE ERYTHEMA [None]
  - INJECTION SITE WARMTH [None]
